FAERS Safety Report 4569280-6 (Version None)
Quarter: 2005Q1

REPORT INFORMATION
  Report Type: 
  Country: None (occurrence: None)
  Receive Date: 20050203
  Receipt Date: 20050124
  Transmission Date: 20050727
  Serious: Yes (Death, Life-Threatening, Hospitalization)
  Sender: FDA-Public Use
  Company Number: GB-GLAXOSMITHKLINE-B0369153A

PATIENT
  Age: 22 Year
  Sex: Male

DRUGS (1)
  1. ACETAMINOPHEN [Suspect]
     Dosage: 32G CUMULATIVE DOSE
     Route: 065
     Dates: start: 20040101

REACTIONS (3)
  - CARDIAC ARREST [None]
  - HEPATIC FAILURE [None]
  - INTENTIONAL MISUSE [None]
